FAERS Safety Report 9285106 (Version 1)
Quarter: 2013Q2

REPORT INFORMATION
  Report Type: Report from Study
  Country: ES (occurrence: ES)
  Receive Date: 20130513
  Receipt Date: 20130513
  Transmission Date: 20140414
  Serious: Yes (Other)
  Sender: FDA-Public Use
  Company Number: ES-ROCHE-1206183

PATIENT
  Sex: 0

DRUGS (3)
  1. PEG-INTERFERON ALFA 2A [Suspect]
     Indication: CHRONIC HEPATITIS C
     Route: 065
  2. RIBAVIRIN [Suspect]
     Indication: CHRONIC HEPATITIS C
     Route: 065
  3. PEGINTERFERON ALFA-2B [Suspect]
     Indication: CHRONIC HEPATITIS C
     Route: 065

REACTIONS (15)
  - Gastrointestinal toxicity [Unknown]
  - Haematotoxicity [Unknown]
  - Nervous system disorder [Unknown]
  - Bone marrow failure [Unknown]
  - Virologic failure [Unknown]
  - Weight decreased [Unknown]
  - Asthenia [Unknown]
  - Fatigue [Unknown]
  - Insomnia [Unknown]
  - Anaemia [Unknown]
  - Musculoskeletal pain [Unknown]
  - Influenza [Unknown]
  - Pyrexia [Unknown]
  - Skin disorder [Unknown]
  - Hair disorder [Unknown]
